FAERS Safety Report 4315440-9 (Version None)
Quarter: 2004Q1

REPORT INFORMATION
  Report Type: 
  Country: None (occurrence: None)
  Receive Date: 20040309
  Receipt Date: 20040224
  Transmission Date: 20041129
  Serious: Yes (Hospitalization)
  Sender: FDA-Public Use
  Company Number: 04P-163-0251463-00

PATIENT
  Age: 69 Year
  Sex: Male
  Weight: 91.6266 kg

DRUGS (9)
  1. HUMIRA [Suspect]
     Indication: ANKYLOSING SPONDYLITIS
     Dosage: 40 MG, 1 IN 1 WK, SUBCUTANEOUS
     Route: 058
  2. TRAMADOL HCL [Concomitant]
  3. OMEPRAZOLE [Concomitant]
  4. SIMVASTATIN [Concomitant]
  5. TAMSULOSIN HYDROCHLORIDE [Concomitant]
  6. LOSARTAN POTASSIUM [Concomitant]
  7. ASPIRIN [Concomitant]
  8. CLOPIDOGREL BISULFATE [Concomitant]
  9. CARVEDILOL [Concomitant]

REACTIONS (5)
  - ASTHENIA [None]
  - BLOOD BILIRUBIN INCREASED [None]
  - DYSPNOEA [None]
  - HAEMOLYTIC ANAEMIA [None]
  - HAPTOGLOBIN INCREASED [None]
